FAERS Safety Report 9352404 (Version 2)
Quarter: 2013Q3

REPORT INFORMATION
  Report Type: Spontaneous
  Country: US (occurrence: US)
  Receive Date: 20130617
  Receipt Date: 20130718
  Transmission Date: 20140515
  Serious: Yes (Hospitalization, Other)
  Sender: FDA-Public Use
  Company Number: US-ELI_LILLY_AND_COMPANY-US201304008443

PATIENT
  Age: 49 Year
  Sex: Female
  Weight: 50.34 kg

DRUGS (1)
  1. FORTEO [Suspect]
     Indication: OSTEOPENIA
     Dosage: UNK, QD
     Dates: start: 20130310

REACTIONS (2)
  - Hip fracture [Recovering/Resolving]
  - Off label use [Unknown]
